FAERS Safety Report 13941758 (Version 1)
Quarter: 2017Q3

REPORT INFORMATION
  Report Type: Spontaneous
  Country: US (occurrence: US)
  Receive Date: 20170906
  Receipt Date: 20170906
  Transmission Date: 20171127
  Serious: Yes (Other)
  Sender: FDA-Public Use
  Company Number: None

PATIENT
  Age: 23 Year
  Sex: Female
  Weight: 56.7 kg

DRUGS (1)
  1. LUVOX [Suspect]
     Active Substance: FLUVOXAMINE MALEATE
     Indication: POST-TRAUMATIC STRESS DISORDER
     Dates: start: 20170903, end: 20170906

REACTIONS (1)
  - Burning sensation [None]

NARRATIVE: CASE EVENT DATE: 20170906
